FAERS Safety Report 21019236 (Version 1)
Quarter: 2022Q2

REPORT INFORMATION
  Report Type: Report from Study
  Country: US (occurrence: US)
  Receive Date: 20220628
  Receipt Date: 20220628
  Transmission Date: 20220721
  Serious: Yes (Other)
  Sender: FDA-Public Use
  Company Number: US-JAZZ-2022-US-003472

PATIENT
  Sex: Female

DRUGS (9)
  1. XYREM [Suspect]
     Active Substance: SODIUM OXYBATE
     Indication: Narcolepsy
     Dosage: 2.25 GRAM, BID
     Route: 048
     Dates: start: 200704, end: 200705
  2. XYREM [Suspect]
     Active Substance: SODIUM OXYBATE
     Dosage: DOSE ADJUSTMENT
     Route: 048
     Dates: start: 200705, end: 201903
  3. XYREM [Suspect]
     Active Substance: SODIUM OXYBATE
     Dosage: 4.5 GRAM, BID
     Route: 048
     Dates: start: 201903
  4. LITHIUM CARBONATE [Concomitant]
     Active Substance: LITHIUM CARBONATE
     Dosage: UNK
     Dates: start: 20120823
  5. VITAMIN D3 [Concomitant]
     Active Substance: CHOLECALCIFEROL
     Dosage: 5000 UNIT
     Dates: start: 20140407
  6. VITAMIN D2 [Concomitant]
     Active Substance: ERGOCALCIFEROL
     Dosage: 2000 UNIT
     Dates: start: 20140407
  7. FLAXSEED OIL NATURE MADE [Concomitant]
     Dosage: UNK
     Dates: start: 20140407
  8. BOTOX [Concomitant]
     Active Substance: ONABOTULINUMTOXINA
     Dosage: 100 UNITS VIAL
     Dates: start: 20141101
  9. SPRAVATO [Concomitant]
     Active Substance: ESKETAMINE
     Dosage: DOSE PACK
     Dates: start: 20191126

REACTIONS (10)
  - Pneumonia [Recovered/Resolved]
  - COVID-19 [Unknown]
  - Laryngitis [Unknown]
  - Fall [Unknown]
  - Weight increased [Unknown]
  - Tooth fracture [Unknown]
  - Paraesthesia [Unknown]
  - Confusional state [Unknown]
  - Amnesia [Unknown]
  - Intentional product use issue [Unknown]
